FAERS Safety Report 6361418-3 (Version None)
Quarter: 2009Q3

REPORT INFORMATION
  Report Type: 
  Country: None (occurrence: None)
  Receive Date: 20090918
  Receipt Date: 20090904
  Transmission Date: 20100115
  Serious: Yes (Disabling)
  Sender: FDA-Public Use
  Company Number: AU-PFIZER INC-2009246239

PATIENT

DRUGS (9)
  1. CHAMPIX [Suspect]
     Indication: SMOKING CESSATION THERAPY
     Dosage: 1 MG, 2X/DAY
     Route: 048
     Dates: start: 20090101, end: 20090718
  2. COVERSYL [Concomitant]
     Dosage: 10 MG, 1X/DAY IN MORNING
  3. ESTRADERM [Concomitant]
     Dosage: 8 MG, UNK
  4. MERSYNDOL [Concomitant]
     Dosage: 2 EVERY 4 HOURS WHEN NEEDED
  5. NORMISON [Concomitant]
     Dosage: 2 EVERY NIGHT
  6. ACETAMINOPHEN W/ CODEINE [Concomitant]
     Dosage: 2 EVERY 4 HOURS WHEN NEEDED
  7. PARIET [Concomitant]
     Dosage: 20 MG, 1X/DAY IN MORNING
  8. PROTHIADEN [Concomitant]
     Dosage: 75 MG, 1X/DAY EACH NIGHT
  9. VALIUM [Concomitant]
     Dosage: 5 MG, 1X/DAY EACH NIGHT

REACTIONS (8)
  - ACID BASE BALANCE ABNORMAL [None]
  - ALANINE AMINOTRANSFERASE INCREASED [None]
  - CHILLS [None]
  - GAMMA-GLUTAMYLTRANSFERASE INCREASED [None]
  - NAUSEA [None]
  - NEUTROPHILIA [None]
  - PYREXIA [None]
  - VOMITING [None]
